FAERS Safety Report 5828509-4 (Version None)
Quarter: 2008Q3

REPORT INFORMATION
  Report Type: 
  Country: None (occurrence: None)
  Receive Date: 20080729
  Receipt Date: 20080723
  Transmission Date: 20090109
  Serious: Yes (Life-Threatening, Hospitalization)
  Sender: FDA-Public Use
  Company Number: URSO-2008-027FUP#2

PATIENT
  Age: 75 Year
  Sex: Male

DRUGS (11)
  1. URSO 250 [Suspect]
     Indication: PYREXIA
     Dosage: 600 MG  ORAL
     Route: 048
     Dates: start: 20071222, end: 20071224
  2. ACETAMINOPHEN [Suspect]
     Indication: PYREXIA
     Dosage: 3 TAB ORAL
     Route: 048
     Dates: start: 20071210, end: 20071214
  3. OZEX (TOSUFLOXACIN TOSILATE) [Suspect]
     Indication: PYREXIA
     Dosage: 3.3 TAB ORAL
     Route: 048
     Dates: start: 20071210, end: 20071214
  4. LEVOFLOXACIN [Suspect]
     Indication: PYREXIA
     Dosage: 4.3 TAB ORAL
     Route: 048
     Dates: start: 20071222, end: 20071224
  5. METHYLPREDNISOLONE [Concomitant]
  6. MAXIPIME (CEFEPIME DIHYDROCHLONDE) [Concomitant]
  7. MINOCYCLINE HCL [Concomitant]
  8. OXYGEN FOR MEDICAL [Concomitant]
  9. PREDNISONE [Concomitant]
  10. TAMSULOSIN HCL [Concomitant]
  11. ADALAT CC [Concomitant]

REACTIONS (2)
  - INTERSTITIAL LUNG DISEASE [None]
  - SPUTUM DISCOLOURED [None]
